FAERS Safety Report 5598961-0 (Version None)
Quarter: 2008Q1

REPORT INFORMATION
  Report Type: 
  Country: None (occurrence: None)
  Receive Date: 20080122
  Receipt Date: 20080114
  Transmission Date: 20080703
  Serious: Yes (Hospitalization)
  Sender: FDA-Public Use
  Company Number: FR-BOEHRINGER INGELHEIM PHARMACEUTICALS, INC.-2008-BP-00942YA

PATIENT
  Sex: Male

DRUGS (13)
  1. TAMSULOSIN HCL [Suspect]
     Indication: BENIGN PROSTATIC HYPERPLASIA
     Route: 048
     Dates: end: 20070410
  2. AUGMENTIN '250' [Suspect]
     Indication: INFECTION
     Dates: start: 20070410, end: 20070419
  3. AUGMENTIN '250' [Suspect]
     Route: 048
     Dates: start: 20070419, end: 20070424
  4. FLECAINIDE ACETATE [Suspect]
     Route: 048
     Dates: end: 20070410
  5. VASTAREL [Suspect]
     Indication: ANXIETY
     Route: 048
     Dates: end: 20070410
  6. LEXOMIL [Suspect]
     Dates: end: 20070410
  7. SERESTA [Suspect]
     Dates: end: 20070410
  8. LASIX [Suspect]
     Dates: end: 20070410
  9. TAVANIC [Concomitant]
     Indication: INFECTION
     Route: 042
     Dates: start: 20070412, end: 20070427
  10. TADENAN [Concomitant]
  11. STILNOX [Concomitant]
     Route: 048
  12. DEROXAT [Concomitant]
     Route: 048
  13. REPORTED IN NARRATIVE [Concomitant]

REACTIONS (1)
  - CHOLESTASIS [None]
